FAERS Safety Report 12162458 (Version 1)
Quarter: 2016Q1

REPORT INFORMATION
  Report Type: Spontaneous
  Country: FI (occurrence: FI)
  Receive Date: 20160309
  Receipt Date: 20160309
  Transmission Date: 20160526
  Serious: Yes (Hospitalization)
  Sender: FDA-Public Use
  Company Number: FI-TEVA-617996ACC

PATIENT
  Age: 73 Year
  Sex: Female

DRUGS (7)
  1. LEVACT [Suspect]
     Active Substance: BENDAMUSTINE HYDROCHLORIDE
     Indication: CHRONIC LYMPHOCYTIC LEUKAEMIA
     Dosage: (140MG) UNKNOWN FREQ.
     Route: 042
     Dates: start: 20041126, end: 20141127
  2. ACICLOVIR [Concomitant]
     Active Substance: ACYCLOVIR
     Indication: INFECTION PROPHYLAXIS
     Dosage: 400 MILLIGRAM DAILY; (MON, THU)
     Route: 065
     Dates: start: 20141125
  3. DITRIM DUPLO [Concomitant]
     Indication: INFECTION PROPHYLAXIS
     Dosage: 2 DOSAGE FORMS DAILY; 1X2 MON, THU.
     Route: 065
     Dates: start: 20141125
  4. ATORVASTATINE                      /01326101/ [Concomitant]
     Active Substance: ATORVASTATIN
     Indication: HYPERCHOLESTEROLAEMIA
     Route: 065
  5. APURIN [Concomitant]
     Active Substance: ALLOPURINOL
     Indication: GOUT
     Route: 065
  6. LEVACT [Suspect]
     Active Substance: BENDAMUSTINE HYDROCHLORIDE
     Dosage: (110MG) UNKNOWN FREQ.
     Route: 042
     Dates: start: 20141229
  7. RITUXIMAB [Concomitant]
     Active Substance: RITUXIMAB
     Indication: CHRONIC LYMPHOCYTIC LEUKAEMIA
     Route: 065
     Dates: start: 20141125

REACTIONS (3)
  - Eczema [Recovered/Resolved]
  - Prescribed underdose [Unknown]
  - Pyrexia [Unknown]

NARRATIVE: CASE EVENT DATE: 201412
